FAERS Safety Report 9304508 (Version 2)
Quarter: 2013Q3

REPORT INFORMATION
  Report Type: Spontaneous
  Country: US (occurrence: US)
  Receive Date: 20130523
  Receipt Date: 20130920
  Transmission Date: 20140515
  Serious: Yes (Hospitalization, Other)
  Sender: FDA-Public Use
  Company Number: US-AMGEN-USASP2013033776

PATIENT
  Age: 55 Year
  Sex: Female

DRUGS (4)
  1. EPOGEN [Suspect]
     Indication: RENAL FAILURE CHRONIC
     Dosage: 2000 UNIT, Q3WK
     Route: 065
     Dates: start: 201304
  2. PROCRIT [Suspect]
     Indication: RENAL FAILURE CHRONIC
     Dosage: 20000 UNIT, UNK
     Route: 058
     Dates: start: 201204
  3. BENZYL ALCOHOL [Suspect]
     Indication: PRODUCT USED FOR UNKNOWN INDICATION
     Dosage: UNK
     Route: 065
  4. VENOFER [Suspect]
     Indication: PRODUCT USED FOR UNKNOWN INDICATION
     Dosage: 50 MG, UNK
     Route: 065
     Dates: start: 201204

REACTIONS (42)
  - Biopsy bone marrow abnormal [Unknown]
  - Phlebitis [Not Recovered/Not Resolved]
  - Haemoglobin decreased [Not Recovered/Not Resolved]
  - Apparent death [Unknown]
  - Fluid overload [Unknown]
  - Haemorrhage [Not Recovered/Not Resolved]
  - Diarrhoea [Not Recovered/Not Resolved]
  - Pulmonary oedema [Unknown]
  - Bacterial toxaemia [Recovered/Resolved]
  - Blood magnesium abnormal [Unknown]
  - Blood sodium decreased [Unknown]
  - Blood potassium decreased [Unknown]
  - Urinary tract infection [Unknown]
  - Toxic encephalopathy [Unknown]
  - Venous stenosis [Unknown]
  - Normochromic normocytic anaemia [Unknown]
  - Cardiac disorder [Unknown]
  - Heart valve incompetence [Not Recovered/Not Resolved]
  - Renal failure chronic [Unknown]
  - Diabetes mellitus inadequate control [Unknown]
  - Embolism [Unknown]
  - Pulmonary embolism [Unknown]
  - Muscle spasms [Unknown]
  - Vomiting [Unknown]
  - Unevaluable event [Unknown]
  - Epistaxis [Unknown]
  - Yellow skin [Unknown]
  - Haemoglobin abnormal [Unknown]
  - Ocular icterus [Unknown]
  - Night sweats [Unknown]
  - Sleep apnoea syndrome [Unknown]
  - Dialysis related complication [Unknown]
  - Ulcer [Unknown]
  - Blood pressure abnormal [Unknown]
  - Swelling face [Unknown]
  - Lip swelling [Unknown]
  - Eye disorder [Unknown]
  - Pneumonia [Unknown]
  - Visual impairment [Not Recovered/Not Resolved]
  - Injection site pain [Unknown]
  - Pyrexia [Unknown]
  - Nasopharyngitis [Unknown]
